FAERS Safety Report 7282453-7 (Version None)
Quarter: 2011Q1

REPORT INFORMATION
  Report Type: 
  Country: None (occurrence: None)
  Receive Date: 20110125
  Receipt Date: 20110120
  Transmission Date: 20110831
  Serious: Yes (Death)
  Sender: FDA-Public Use
  Company Number: 025504

PATIENT
  Age: 76 Year
  Sex: Female

DRUGS (9)
  1. METHADONE HCL [Suspect]
     Dosage: ORAL
     Route: 048
  2. HYDROCODONE BITARTRATE AND ACETAMINOPHEN [Suspect]
     Dosage: ORAL
     Route: 048
  3. BETA BLOCKING AGENTS [Suspect]
     Dosage: ORAL
     Route: 048
  4. PANTOPRAZOLE SODIUM [Suspect]
  5. ALPRAZOLAM [Suspect]
     Dosage: ORAL
     Route: 048
  6. SIMVASTATIN [Suspect]
  7. AMPHETAMINES [Suspect]
  8. FUROSEMIDE [Suspect]
  9. LEVOTHYROXINE SODIUM [Suspect]

REACTIONS (1)
  - COMPLETED SUICIDE [None]
